FAERS Safety Report 11740534 (Version 1)
Quarter: 2015Q4

REPORT INFORMATION
  Report Type: Spontaneous
  Country: US (occurrence: US)
  Receive Date: 20151110
  Receipt Date: 20151110
  Transmission Date: 20160304
  Serious: No
  Sender: FDA-Public Use
  Company Number: US-ELI_LILLY_AND_COMPANY-US201206006991

PATIENT
  Sex: Female

DRUGS (8)
  1. LAROXYL [Concomitant]
     Active Substance: AMITRIPTYLINE
  2. NEXIUM [Concomitant]
     Active Substance: ESOMEPRAZOLE MAGNESIUM
  3. ATORVASTATIN [Concomitant]
     Active Substance: ATORVASTATIN
  4. FORTEO [Suspect]
     Active Substance: TERIPARATIDE
     Indication: OSTEOPOROSIS
     Dosage: 20 UG, QD
     Route: 065
     Dates: start: 201011
  5. HYDROCHLOROTHIAZIDE. [Concomitant]
     Active Substance: HYDROCHLOROTHIAZIDE
  6. VESICARE [Concomitant]
     Active Substance: SOLIFENACIN SUCCINATE
  7. CALCIUM [Concomitant]
     Active Substance: CALCIUM
  8. METOPROLOL [Concomitant]
     Active Substance: METOPROLOL

REACTIONS (1)
  - Parkinsonism [Unknown]
